FAERS Safety Report 8401606-5 (Version None)
Quarter: 2012Q2

REPORT INFORMATION
  Report Type: 
  Country: None (occurrence: None)
  Receive Date: 20120601
  Receipt Date: 20120524
  Transmission Date: 20120825
  Serious: Yes (Other)
  Sender: FDA-Public Use
  Company Number: PHHY2012MX008239

PATIENT
  Sex: Female

DRUGS (11)
  1. DICLOFENAC [Concomitant]
  2. METFORMIN HCL [Concomitant]
  3. PIROXICAM [Concomitant]
  4. ACETAMINOPHEN [Concomitant]
  5. DIOVAN HCT [Suspect]
     Indication: HYPERTENSION
     Dosage: 1 DF (160/12.5 MG), DAILY
     Dates: start: 20090301, end: 20111201
  6. IMDUR [Concomitant]
     Dosage: 1 DF, DAILY
     Dates: start: 20080501
  7. ASPIRIN [Concomitant]
  8. PRAVASTATIN [Concomitant]
  9. METOPROLOL TARTRATE [Concomitant]
  10. CARBAMAZEPINE [Concomitant]
  11. NITROGLYCERIN [Concomitant]
     Indication: PAIN

REACTIONS (9)
  - ASTHENOPIA [None]
  - BACK PAIN [None]
  - DECREASED APPETITE [None]
  - ANGINA UNSTABLE [None]
  - DIZZINESS [None]
  - BLOOD PRESSURE INCREASED [None]
  - NAUSEA [None]
  - CHEST PAIN [None]
  - HEADACHE [None]
